FAERS Safety Report 5868222-0 (Version None)
Quarter: 2008Q3

REPORT INFORMATION
  Report Type: 
  Country: None (occurrence: None)
  Receive Date: 20080902
  Receipt Date: 20080821
  Transmission Date: 20090109
  Serious: Yes (Hospitalization)
  Sender: FDA-Public Use
  Company Number: FR-PFIZER INC-2008070879

PATIENT
  Sex: Female

DRUGS (4)
  1. SUTENT [Suspect]
     Route: 048
     Dates: start: 20080530, end: 20080627
  2. SOLUPRED [Suspect]
     Route: 048
  3. OXYCONTIN [Suspect]
     Route: 048
  4. KYTRIL [Suspect]
     Route: 048
     Dates: start: 20080613, end: 20080627

REACTIONS (1)
  - PULMONARY ARTERIAL HYPERTENSION [None]
